FAERS Safety Report 7419329-8 (Version None)
Quarter: 2011Q2

REPORT INFORMATION
  Report Type: 
  Country: None (occurrence: None)
  Receive Date: 20110415
  Receipt Date: 20110406
  Transmission Date: 20111010
  Serious: Yes (Hospitalization, Other)
  Sender: FDA-Public Use
  Company Number: US-ASTRAZENECA-2011SE19593

PATIENT
  Age: 748 Month
  Sex: Female
  Weight: 88.5 kg

DRUGS (5)
  1. ACIDPHEX [Concomitant]
  2. DRUG FOR CHOLESTEROL [Concomitant]
  3. DRUG FOR BLOOD PRESSURE [Concomitant]
  4. PPI [Concomitant]
  5. NEXIUM [Suspect]
     Indication: GASTROOESOPHAGEAL REFLUX DISEASE
     Dosage: DAILY
     Route: 048

REACTIONS (4)
  - FALL [None]
  - LOWER LIMB FRACTURE [None]
  - ROTATOR CUFF SYNDROME [None]
  - WRIST FRACTURE [None]
